FAERS Safety Report 4717894-2 (Version None)
Quarter: 2005Q3

REPORT INFORMATION
  Report Type: 
  Country: None (occurrence: None)
  Receive Date: 20050720
  Receipt Date: 20050714
  Transmission Date: 20060218
  Serious: Yes (Death)
  Sender: FDA-Public Use
  Company Number: CH-BOEHRINGER INGELHEIM PHARMACEUTICALS, INC.-2005-DE-02775SI

PATIENT
  Age: 59 Year
  Sex: Male

DRUGS (4)
  1. ASASANTIN 200/25 MG RETARD [Suspect]
     Dosage: STRENGTH: 200/25MG DAILY DOSE: 400/50MG
     Route: 048
     Dates: end: 20050607
  2. RAPAMUNE [Concomitant]
     Route: 048
     Dates: end: 20050609
  3. CELLCEPT [Concomitant]
     Route: 048
  4. LAMIVUDINE [Concomitant]
     Route: 048
     Dates: end: 20050609

REACTIONS (3)
  - BRAIN STEM HAEMORRHAGE [None]
  - CEREBRAL ARTERIOVENOUS MALFORMATION HAEMORRHAGIC [None]
  - CEREBROVASCULAR ACCIDENT [None]
